FAERS Safety Report 8030439-7 (Version None)
Quarter: 2011Q4

REPORT INFORMATION
  Report Type: 
  Country: None (occurrence: None)
  Receive Date: 20111130
  Receipt Date: 20110725
  Transmission Date: 20120403
  Serious: Yes (Hospitalization, Other)
  Sender: FDA-Public Use
  Company Number: US200906001549

PATIENT
  Age: 65 Year
  Sex: Male
  Weight: 103.9 kg

DRUGS (9)
  1. ACTOS [Concomitant]
  2. ASPIRIN [Concomitant]
  3. NEXIUM [Concomitant]
  4. LIPITOR [Concomitant]
  5. ATENOLOL [Concomitant]
  6. EXENATIDE UNK STRENGTH PEN, DISPOSABLE DEVICE (EXENATIDE PEN (UNKNOWN [Concomitant]
  7. BYETTA [Suspect]
     Indication: TYPE 2 DIABETES MELLITUS
     Dates: start: 20060801, end: 20070401
  8. MCARDIS HCT (HYDROCHLOROTHIAZIDE, TELMISARTAN) [Concomitant]
  9. METFORMIN HCL [Concomitant]

REACTIONS (2)
  - PANCREATITIS ACUTE [None]
  - PANCREATITIS RELAPSING [None]
